FAERS Safety Report 5312980-0 (Version None)
Quarter: 2007Q2

REPORT INFORMATION
  Report Type: 
  Country: None (occurrence: None)
  Receive Date: 20070430
  Receipt Date: 20070424
  Transmission Date: 20071010
  Serious: Yes (Hospitalization)
  Sender: FDA-Public Use
  Company Number: NZ-MERCK-0704NZL00020

PATIENT
  Age: 47 Year
  Sex: Female

DRUGS (18)
  1. FOSAMAX [Suspect]
     Indication: OSTEOPOROSIS
     Route: 048
     Dates: start: 20060101, end: 20060101
  2. FOSAMAX [Suspect]
     Route: 048
     Dates: start: 20070101, end: 20070401
  3. FOSAMAX [Suspect]
     Route: 048
     Dates: start: 20070401, end: 20070401
  4. FOSAMAX [Suspect]
     Route: 048
     Dates: start: 20070401
  5. ALBUTEROL SULFATE [Concomitant]
     Indication: EMPHYSEMA
  6. ALBUTEROL SULFATE [Concomitant]
     Indication: ASTHMA
  7. SALMETEROL XINAFOATE [Concomitant]
     Indication: ASTHMA
  8. ALBUTEROL [Concomitant]
     Indication: ASTHMA
  9. FLUTICASONE PROPIONATE AND SALMETEROL XINAFOATE [Concomitant]
     Indication: ASTHMA
  10. PREDNISONE [Concomitant]
     Indication: ASTHMA
     Route: 065
  11. AMOXICILLIN AND CLAVULANATE POTASSIUM [Concomitant]
     Route: 048
  12. ASPIRIN [Concomitant]
     Route: 048
  13. CALCIUM (UNSPECIFIED) [Concomitant]
     Route: 048
  14. FUROSEMIDE [Concomitant]
     Route: 048
  15. ACETAMINOPHEN [Concomitant]
     Route: 048
  16. INFLUENZA VIRUS VACCINE (UNSPECIFIED) [Concomitant]
     Route: 051
  17. [THERAPY UNSPECIFIED] [Concomitant]
     Route: 065
  18. [THERAPY UNSPECIFIED] [Concomitant]
     Indication: DEPRESSION
     Route: 065

REACTIONS (2)
  - ASTHMA [None]
  - CHEST PAIN [None]
